FAERS Safety Report 7699872-7 (Version None)
Quarter: 2011Q3

REPORT INFORMATION
  Report Type: 
  Country: None (occurrence: None)
  Receive Date: 20110822
  Receipt Date: 20110808
  Transmission Date: 20111222
  Serious: Yes (Other)
  Sender: FDA-Public Use
  Company Number: DE-MYLANLABS-2011S1013742

PATIENT
  Age: 0 Year
  Sex: Female
  Weight: 2.96 kg

DRUGS (4)
  1. CITALOPRAM HYDROBROMIDE [Suspect]
     Dosage: 15 [MG/D ]
     Route: 064
  2. ALPRAZOLAM [Concomitant]
     Route: 064
     Dates: start: 20090527
  3. FOLIO [Concomitant]
     Route: 064
  4. PAROXETINE HCL [Suspect]
     Dosage: 10 [MG/D ]
     Route: 064

REACTIONS (2)
  - MATERNAL EXPOSURE DURING PREGNANCY [None]
  - SMALL FOR DATES BABY [None]
